FAERS Safety Report 14768769 (Version 1)
Quarter: 2018Q2

REPORT INFORMATION
  Report Type: Spontaneous
  Country: FR (occurrence: FR)
  Receive Date: 20180417
  Receipt Date: 20180417
  Transmission Date: 20180711
  Serious: Yes (Hospitalization)
  Sender: FDA-Public Use
  Company Number: FR-JNJFOC-20180234954

PATIENT
  Age: 40 Year
  Sex: Male
  Weight: 81.4 kg

DRUGS (5)
  1. TREVICTA [Suspect]
     Active Substance: PALIPERIDONE PALMITATE
     Indication: PRODUCT USED FOR UNKNOWN INDICATION
     Route: 030
  2. REVIA [Concomitant]
     Active Substance: NALTREXONE HYDROCHLORIDE
     Indication: ALCOHOL WITHDRAWAL SYNDROME
     Route: 048
  3. TREVICTA [Suspect]
     Active Substance: PALIPERIDONE PALMITATE
     Indication: PRODUCT USED FOR UNKNOWN INDICATION
     Route: 030
     Dates: start: 201709
  4. AOTAL [Concomitant]
     Active Substance: ACAMPROSATE CALCIUM
     Indication: ALCOHOL WITHDRAWAL SYNDROME
     Route: 048
  5. VALIUM [Concomitant]
     Active Substance: DIAZEPAM
     Indication: ANXIETY
     Route: 048

REACTIONS (4)
  - Gamma-glutamyltransferase increased [Unknown]
  - Schizophrenia [Recovered/Resolved]
  - Serum ferritin increased [Unknown]
  - Sedation [Recovered/Resolved]

NARRATIVE: CASE EVENT DATE: 201709
